FAERS Safety Report 5515349-9 (Version None)
Quarter: 2007Q4

REPORT INFORMATION
  Report Type: 
  Country: None (occurrence: None)
  Receive Date: 20071109
  Receipt Date: 20071031
  Transmission Date: 20080405
  Serious: Yes (Hospitalization, Other)
  Sender: FDA-Public Use
  Company Number: 2007BI023137

PATIENT
  Age: 38 Year
  Sex: Female

DRUGS (5)
  1. AVONEX [Suspect]
     Indication: MULTIPLE SCLEROSIS
     Dosage: 30 UG;QW;IM
     Route: 030
     Dates: start: 20040528, end: 20070901
  2. LOTREL [Concomitant]
  3. DEPAKOTE [Concomitant]
  4. LANTUS [Concomitant]
  5. DILANTIN [Concomitant]

REACTIONS (9)
  - ANGER [None]
  - ASTHENIA [None]
  - BACK INJURY [None]
  - BLINDNESS UNILATERAL [None]
  - FALL [None]
  - ILL-DEFINED DISORDER [None]
  - PAIN [None]
  - PAIN IN EXTREMITY [None]
  - RENAL FAILURE [None]
